FAERS Safety Report 16594432 (Version 1)
Quarter: 2019Q3

REPORT INFORMATION
  Report Type: Spontaneous
  Country: US (occurrence: US)
  Receive Date: 20190718
  Receipt Date: 20190718
  Transmission Date: 20191004
  Serious: Yes (Hospitalization)
  Sender: FDA-Public Use
  Company Number: US-VERTEX PHARMACEUTICALS-2019-006505

PATIENT
  Age: 36 Year
  Sex: Female

DRUGS (35)
  1. COLISTIMETHATE [COLISTIMETHATE SODIUM] [Concomitant]
  2. TOBI [Concomitant]
     Active Substance: TOBRAMYCIN
  3. DULOXETINE. [Concomitant]
     Active Substance: DULOXETINE
  4. KALYDECO [Suspect]
     Active Substance: IVACAFTOR
     Indication: CYSTIC FIBROSIS
     Dosage: 150 MG, BID
     Route: 048
     Dates: start: 20130813
  5. ALBUTEROL [SALBUTAMOL SULFATE] [Concomitant]
     Active Substance: ALBUTEROL SULFATE
  6. FUROSEMIDE. [Concomitant]
     Active Substance: FUROSEMIDE
  7. HYDROXYZINE HCL [Concomitant]
     Active Substance: HYDROXYZINE HYDROCHLORIDE
  8. SYMBICORT [Concomitant]
     Active Substance: BUDESONIDE\FORMOTEROL FUMARATE DIHYDRATE
  9. CAYSTON [Concomitant]
     Active Substance: AZTREONAM
  10. CEFTRIAXONE. [Concomitant]
     Active Substance: CEFTRIAXONE
  11. FENTANYL. [Concomitant]
     Active Substance: FENTANYL
  12. OXYCODONE [Concomitant]
     Active Substance: OXYCODONE
  13. PULMOZYME [Concomitant]
     Active Substance: DORNASE ALFA
  14. OXYCONTIN [Concomitant]
     Active Substance: OXYCODONE HYDROCHLORIDE
  15. IPRATROPIUM BROMIDE/ALBUTEROL SULFATE [Concomitant]
     Active Substance: ALBUTEROL SULFATE\IPRATROPIUM BROMIDE
  16. ALBUTEROL [SALBUTAMOL] [Concomitant]
     Active Substance: ALBUTEROL
  17. LANTUS [Concomitant]
     Active Substance: INSULIN GLARGINE
  18. SMZ-TMP [Concomitant]
     Active Substance: SULFAMETHOXAZOLE\TRIMETHOPRIM
  19. DIAZEPAM. [Concomitant]
     Active Substance: DIAZEPAM
  20. PREDNISONE [PREDNISONE ACETATE] [Concomitant]
     Active Substance: PREDNISONE ACETATE
  21. NOVOLOG [Concomitant]
     Active Substance: INSULIN ASPART
  22. ALENDRONATE [Concomitant]
     Active Substance: ALENDRONATE SODIUM
     Route: 065
  23. PROCLORPERAZINA [Concomitant]
  24. METOPROLOL. [Concomitant]
     Active Substance: METOPROLOL
  25. SODIUM CHLORIDE. [Concomitant]
     Active Substance: SODIUM CHLORIDE
  26. CEFEPIME [Concomitant]
     Active Substance: CEFEPIME HYDROCHLORIDE
  27. HYDROMORPHONE [Concomitant]
     Active Substance: HYDROMORPHONE
  28. XOPENEX HFA [Concomitant]
     Active Substance: LEVALBUTEROL TARTRATE
  29. HUMALOG [Concomitant]
     Active Substance: INSULIN LISPRO
  30. LIDOCAINE. [Concomitant]
     Active Substance: LIDOCAINE
  31. IPRATROPIUM [Concomitant]
     Active Substance: IPRATROPIUM
  32. TOBREX [Concomitant]
     Active Substance: TOBRAMYCIN
  33. FLUOXETINE [Concomitant]
     Active Substance: FLUOXETINE HYDROCHLORIDE
  34. DOXAZOSIN [Concomitant]
     Active Substance: DOXAZOSIN MESYLATE
  35. AZITHROMYCIN ANHYDROUS. [Concomitant]
     Active Substance: AZITHROMYCIN ANHYDROUS

REACTIONS (1)
  - Infective pulmonary exacerbation of cystic fibrosis [Unknown]

NARRATIVE: CASE EVENT DATE: 20190429
